FAERS Safety Report 21781137 (Version 1)
Quarter: 2022Q4

REPORT INFORMATION
  Report Type: Spontaneous
  Country: GB (occurrence: GB)
  Receive Date: 20221227
  Receipt Date: 20221227
  Transmission Date: 20230112
  Serious: Yes (Hospitalization)
  Sender: FDA-Public Use
  Company Number: GB-MHRA-MED-202211141544291530-GZSQV

PATIENT
  Age: 75 Year
  Sex: Male

DRUGS (1)
  1. CIPROFLOXACIN [Suspect]
     Active Substance: CIPROFLOXACIN
     Indication: Skin ulcer
     Dosage: 3 TABLETS

REACTIONS (7)
  - Delirium [Recovered/Resolved]
  - Panic attack [Unknown]
  - Vitamin B12 deficiency [Unknown]
  - Gait disturbance [Unknown]
  - Confusional state [Unknown]
  - Anxiety [Unknown]
  - Neuropathy peripheral [Unknown]

NARRATIVE: CASE EVENT DATE: 20220126
